FAERS Safety Report 8618830-9 (Version None)
Quarter: 2012Q3

REPORT INFORMATION
  Report Type: 
  Country: None (occurrence: None)
  Receive Date: 20120824
  Receipt Date: 20120814
  Transmission Date: 20120928
  Serious: Yes (Hospitalization)
  Sender: FDA-Public Use
  Company Number: US-JNJFOC-20120110700

PATIENT
  Age: 63 Year
  Sex: Female
  Weight: 121 kg

DRUGS (9)
  1. ACETAMINOPHEN [Suspect]
     Indication: PRODUCT USED FOR UNKNOWN INDICATION
     Route: 048
     Dates: start: 20120113
  2. DRAMAMINE [Suspect]
     Route: 048
     Dates: start: 20120113, end: 20120113
  3. OMEPRAZOLE [Concomitant]
  4. DRAMAMINE [Suspect]
     Indication: PRODUCT USED FOR UNKNOWN INDICATION
     Route: 048
     Dates: start: 20120114, end: 20120114
  5. IMODIUM [Suspect]
     Route: 048
  6. IMODIUM [Suspect]
     Indication: PRODUCT USED FOR UNKNOWN INDICATION
     Route: 048
  7. CYMBALTA [Concomitant]
  8. ZOLPIDEM [Concomitant]
  9. ACETAMINOPHEN [Suspect]
     Route: 048

REACTIONS (7)
  - MULTIPLE DRUG OVERDOSE INTENTIONAL [None]
  - NAUSEA [None]
  - VOMITING [None]
  - ABDOMINAL PAIN [None]
  - TRANSAMINASES INCREASED [None]
  - INTENTIONAL SELF-INJURY [None]
  - PROTHROMBIN TIME PROLONGED [None]
